FAERS Safety Report 13247534 (Version 1)
Quarter: 2017Q1

REPORT INFORMATION
  Report Type: Not Available
  Country: AU (occurrence: AU)
  Receive Date: 20170217
  Receipt Date: 20170217
  Transmission Date: 20170428
  Serious: Yes (Hospitalization)
  Sender: FDA-Public Use
  Company Number: AU-MUNDIPHARMA DS AND PHARMACOVIGILANCE-GBR-2017-0043399

PATIENT
  Age: 81 Year
  Sex: Female

DRUGS (8)
  1. TARGIN [Suspect]
     Active Substance: NALOXONE HYDROCHLORIDE\OXYCODONE HYDROCHLORIDE
     Dosage: 20/10MG (10/5MG TWICE DAILY)
     Route: 048
  2. INSULIN [Concomitant]
     Active Substance: INSULIN NOS
  3. FORTEO [Suspect]
     Active Substance: TERIPARATIDE
     Indication: OSTEOPOROSIS
     Dosage: 20 MCG, DAILY
     Route: 065
     Dates: start: 20161006
  4. DIGOXIN. [Concomitant]
     Active Substance: DIGOXIN
     Indication: CARDIAC DISORDER
     Dosage: UNK
  5. ANALGESIC                          /00735901/ [Concomitant]
  6. WARFARIN [Concomitant]
     Active Substance: WARFARIN
     Indication: CONTUSION
  7. TARGIN [Suspect]
     Active Substance: NALOXONE HYDROCHLORIDE\OXYCODONE HYDROCHLORIDE
     Indication: PAIN
     Dosage: 80/40MG (40/20MG TWICE DAILY)
     Route: 048
     Dates: start: 20161014
  8. TARGIN [Suspect]
     Active Substance: NALOXONE HYDROCHLORIDE\OXYCODONE HYDROCHLORIDE
     Dosage: 60/30MG (30/15MG TWICE DAILY)
     Route: 048

REACTIONS (11)
  - Toxicity to various agents [Not Recovered/Not Resolved]
  - Constipation [Not Recovered/Not Resolved]
  - Malaise [Recovered/Resolved]
  - Feeling abnormal [Recovered/Resolved]
  - Presyncope [Unknown]
  - Weight decreased [Not Recovered/Not Resolved]
  - Musculoskeletal chest pain [Recovered/Resolved]
  - Renal failure [Not Recovered/Not Resolved]
  - Heart rate decreased [Recovered/Resolved]
  - Contusion [Unknown]
  - Vomiting [Recovered/Resolved]

NARRATIVE: CASE EVENT DATE: 20161014
